FAERS Safety Report 8425110-3 (Version None)
Quarter: 2012Q2

REPORT INFORMATION
  Report Type: 
  Country: None (occurrence: None)
  Receive Date: 20120601
  Receipt Date: 20120523
  Transmission Date: 20120825
  Serious: Yes (Hospitalization)
  Sender: FDA-Public Use
  Company Number: 2012SP028076

PATIENT
  Age: 89 Year
  Sex: Female

DRUGS (1)
  1. REMERON [Suspect]
     Indication: DEPRESSION
     Dosage: 7.5 MG;QD;PO
     Route: 048
     Dates: start: 20120501, end: 20120522

REACTIONS (4)
  - OROPHARYNGEAL PAIN [None]
  - TREMOR [None]
  - OEDEMA PERIPHERAL [None]
  - URINARY TRACT INFECTION [None]
